FAERS Safety Report 7512613-9 (Version None)
Quarter: 2011Q2

REPORT INFORMATION
  Report Type: 
  Country: None (occurrence: None)
  Receive Date: 20110531
  Receipt Date: 20110524
  Transmission Date: 20111010
  Serious: Yes (Life-Threatening)
  Sender: FDA-Public Use
  Company Number: US-ROXANE LABORATORIES, INC.-2011-RO-00715RO

PATIENT
  Age: 22 Year
  Sex: Female

DRUGS (6)
  1. MYCOPHENOLATE MEFETIL [Suspect]
  2. PREDNISONE [Suspect]
     Dosage: 5 MG
  3. TACROLIMUS [Suspect]
     Dosage: 6 MG
  4. MYCOPHENOLATE MEFETIL [Suspect]
     Indication: IMMUNOSUPPRESSION
     Dosage: 1 G
  5. OMEPRAZOLE [Suspect]
     Dosage: 20 MG
  6. FERROUS SULFATE TAB [Suspect]
     Dosage: 600 MG

REACTIONS (23)
  - CAESAREAN SECTION [None]
  - JOINT ANKYLOSIS [None]
  - FAILURE TO THRIVE [None]
  - FOETAL GROWTH RESTRICTION [None]
  - ACROCHORDON [None]
  - DEVELOPMENTAL DELAY [None]
  - SUICIDE ATTEMPT [None]
  - PULMONARY VALVE STENOSIS [None]
  - MICROTIA [None]
  - CLEFT PALATE [None]
  - MATERNAL DRUGS AFFECTING FOETUS [None]
  - HEART DISEASE CONGENITAL [None]
  - APGAR SCORE LOW [None]
  - CRYPTORCHISM [None]
  - ATRIAL SEPTAL DEFECT [None]
  - NEONATAL RESPIRATORY DISTRESS SYNDROME [None]
  - INCORRECT DOSE ADMINISTERED [None]
  - IRIS COLOBOMA [None]
  - PTERYGIUM COLLI [None]
  - VENTRICULAR SEPTAL DEFECT [None]
  - MICROGNATHIA [None]
  - CONGENITAL DEFORMITY OF CLAVICLE [None]
  - MICROSOMIA [None]
